FAERS Safety Report 11931143 (Version 1)
Quarter: 2016Q1

REPORT INFORMATION
  Report Type: Spontaneous
  Country: NL (occurrence: NL)
  Receive Date: 20160120
  Receipt Date: 20160120
  Transmission Date: 20160526
  Serious: Yes (Hospitalization)
  Sender: FDA-Public Use
  Company Number: PHHY2016NL003162

PATIENT
  Age: 1 Year
  Sex: Female

DRUGS (2)
  1. SALBUTAMOL SANDOZ [Suspect]
     Active Substance: ALBUTEROL
     Indication: WHEEZING
     Dosage: 3 KEER PER DAG 1 STUK(S), EXTRA INFO: ZO NODIG
     Route: 055
     Dates: start: 20160103
  2. QVAR [Concomitant]
     Active Substance: BECLOMETHASONE DIPROPIONATE
     Indication: PRODUCT USED FOR UNKNOWN INDICATION
     Dosage: 2 KEER PER DAG 1 STUK(S)
     Route: 055
     Dates: start: 20151231

REACTIONS (3)
  - Therapeutic response decreased [Recovering/Resolving]
  - Product quality issue [Recovering/Resolving]
  - Asthma [Recovering/Resolving]

NARRATIVE: CASE EVENT DATE: 20160104
